FAERS Safety Report 4644386-1 (Version None)
Quarter: 2005Q2

REPORT INFORMATION
  Report Type: 
  Country: None (occurrence: None)
  Receive Date: 20050331
  Receipt Date: 20041217
  Transmission Date: 20051028
  Serious: No
  Sender: FDA-Public Use
  Company Number: 04P-163-0283895-00

PATIENT

DRUGS (1)
  1. HUMIRA [Suspect]
     Dosage: 40 MG, SUBCUTANEOUS
     Route: 058

REACTIONS (2)
  - HYPOAESTHESIA [None]
  - PARAESTHESIA [None]
